FAERS Safety Report 9360248 (Version 2)
Quarter: 2013Q4

REPORT INFORMATION
  Report Type: Spontaneous
  Country: US (occurrence: US)
  Receive Date: 20130621
  Receipt Date: 20131209
  Transmission Date: 20140711
  Serious: Yes (Hospitalization)
  Sender: FDA-Public Use
  Company Number: US-BAYER-2013-072509

PATIENT
  Age: 48 Year
  Sex: Female
  Weight: 81.63 kg

DRUGS (8)
  1. MIRENA [Suspect]
     Indication: MENORRHAGIA
     Dosage: 20 MCG/24HR, CONT
     Route: 015
     Dates: start: 20070416, end: 20110701
  2. PRAVACHOL [Concomitant]
     Dosage: 20 MG, UNK
     Route: 048
  3. GLUCOPHAGE [Concomitant]
     Dosage: 500 MG, UNK
     Route: 048
  4. PROVENTIL [Concomitant]
     Indication: WHEEZING
     Dosage: 90 MCG, UNK
  5. COMBIVENT [Concomitant]
     Dosage: 18-103 MCG, UNK
  6. VITAMIN E [Concomitant]
     Dosage: 40 UNIT, UNK
     Route: 048
  7. DITROPAN [Concomitant]
     Dosage: 10 MG, UNK
     Route: 048
  8. MOTRIN [Concomitant]
     Dosage: 600 MG, UNK
     Route: 048

REACTIONS (7)
  - Device dislocation [None]
  - Injury [None]
  - Pain [None]
  - Medical device complication [None]
  - Device issue [None]
  - Device expulsion [None]
  - Adnexa uteri mass [None]
